FAERS Safety Report 17496666 (Version 1)
Quarter: 2020Q1

REPORT INFORMATION
  Report Type: Spontaneous
  Country: DE (occurrence: FR)
  Receive Date: 20200304
  Receipt Date: 20200304
  Transmission Date: 20200409
  Serious: Yes (Other)
  Sender: FDA-Public Use
  Company Number: FR-ELI_LILLY_AND_COMPANY-FR202003000591

PATIENT
  Age: 52 Year
  Sex: Male
  Weight: 90 kg

DRUGS (7)
  1. CARBOPLATIN ACCORD [Suspect]
     Active Substance: CARBOPLATIN
     Indication: BONE CANCER
     Dosage: 530 MG, CYCLICAL
     Route: 042
     Dates: start: 20191224, end: 20191224
  2. SOLUPRED [PREDNISOLONE] [Suspect]
     Active Substance: PREDNISOLONE
     Indication: TUMOUR INFLAMMATION
     Dosage: 60 MG, DAILY
     Route: 048
     Dates: start: 20191129, end: 20200203
  3. FLUOROURACIL ACCORD [Suspect]
     Active Substance: FLUOROURACIL
     Indication: BONE CANCER
     Dosage: 8650 MG, CYCLICAL
     Route: 042
     Dates: start: 20191224, end: 20191228
  4. SOLU-MEDROL [Suspect]
     Active Substance: METHYLPREDNISOLONE SODIUM SUCCINATE
     Indication: PROPHYLAXIS
     Dosage: 80 MG, CYCLICAL
     Route: 042
     Dates: start: 20191231, end: 20191231
  5. ERBITUX [Suspect]
     Active Substance: CETUXIMAB
     Indication: BONE CANCER
     Dosage: 500 MG, CYCLICAL
     Route: 042
     Dates: start: 20191231, end: 20191231
  6. DOLIPRANE [Concomitant]
     Active Substance: ACETAMINOPHEN
     Indication: PRODUCT USED FOR UNKNOWN INDICATION
     Dosage: UNK
     Route: 048
  7. POLARAMINE [Concomitant]
     Active Substance: DEXCHLORPHENIRAMINE MALEATE
     Indication: PROPHYLAXIS
     Dosage: UNK
     Route: 042

REACTIONS (1)
  - Duodenal ulcer perforation [Recovered/Resolved with Sequelae]

NARRATIVE: CASE EVENT DATE: 20200103
